FAERS Safety Report 8788794 (Version 1)
Quarter: 2012Q4

REPORT INFORMATION
  Report Type: Report from Study
  Country: CA (occurrence: CA)
  Receive Date: 20120915
  Receipt Date: 20120915
  Transmission Date: 20130627
  Serious: Yes (Hospitalization)
  Sender: FDA-Public Use
  Company Number: CA-ABBOTT-12P-028-0972745-00

PATIENT
  Sex: Female

DRUGS (1)
  1. HUMIRA [Suspect]
     Route: 058
     Dates: start: 20091015, end: 20120802

REACTIONS (5)
  - Hepatic lesion [Unknown]
  - Abdominal pain [Unknown]
  - Liver abscess [Unknown]
  - Abscess [Unknown]
  - Pyrexia [Unknown]
